FAERS Safety Report 9087580 (Version 1)
Quarter: 2013Q1

REPORT INFORMATION
  Report Type: Report from Study
  Country: US (occurrence: US)
  Receive Date: 20130130
  Receipt Date: 20130130
  Transmission Date: 20140127
  Serious: No
  Sender: FDA-Public Use
  Company Number: US-ABBOTT-12P-163-0978534-00

PATIENT
  Age: 61 Year
  Sex: Female

DRUGS (24)
  1. HUMIRA [Suspect]
     Indication: RHEUMATOID ARTHRITIS
     Dates: start: 201101
  2. ALLEGRA [Concomitant]
     Indication: HYPERSENSITIVITY
  3. SYMBALTA [Concomitant]
     Indication: DEPRESSION
  4. SYMBALTA [Concomitant]
     Indication: PAIN
  5. ZETIA [Concomitant]
     Indication: BLOOD CHOLESTEROL
  6. ARAVA [Concomitant]
     Indication: RHEUMATOID ARTHRITIS
  7. FOLIC ACID [Concomitant]
     Indication: PRODUCT USED FOR UNKNOWN INDICATION
     Dosage: 1-2 DAILY
  8. METHOTREXATE [Concomitant]
     Indication: PRODUCT USED FOR UNKNOWN INDICATION
  9. OXYBUTYNIN [Concomitant]
     Indication: URINARY INCONTINENCE
  10. LISINOPRIL [Concomitant]
     Indication: HYPERTENSION
  11. SIMVASTATIN [Concomitant]
     Indication: BLOOD CHOLESTEROL INCREASED
  12. COREG [Concomitant]
     Indication: CORONARY ARTERY DISEASE
  13. PRILOSEC [Concomitant]
     Indication: GASTROOESOPHAGEAL REFLUX DISEASE
  14. PRILOSEC [Concomitant]
     Indication: GASTRIC ULCER
  15. LEVOTHYROXIN [Concomitant]
     Indication: BLOOD THYROID STIMULATING HORMONE DECREASED
  16. ASPIRIN [Concomitant]
     Indication: PRODUCT USED FOR UNKNOWN INDICATION
  17. MULTIVITAMIN [Concomitant]
     Indication: PRODUCT USED FOR UNKNOWN INDICATION
     Dosage: DAILY
  18. IRON [Concomitant]
     Indication: PRODUCT USED FOR UNKNOWN INDICATION
     Dosage: DAILY
  19. POTASSIUM [Concomitant]
     Indication: PRODUCT USED FOR UNKNOWN INDICATION
     Dosage: DAILY
  20. FISH OIL [Concomitant]
     Indication: PRODUCT USED FOR UNKNOWN INDICATION
  21. OXYCODONE [Concomitant]
     Indication: BACK PAIN
     Dosage: 5/325MG AS NEEDED
  22. OXYCODONE [Concomitant]
     Indication: INTERVERTEBRAL DISC DEGENERATION
  23. OXYCODONE [Concomitant]
     Indication: NEUROPATHY PERIPHERAL
  24. UNKNOWN MUSCLE RELAXER [Concomitant]
     Indication: MUSCLE RELAXANT THERAPY

REACTIONS (2)
  - Injection site pain [Recovered/Resolved]
  - Injection site haemorrhage [Unknown]
